FAERS Safety Report 5298887-6 (Version None)
Quarter: 2007Q2

REPORT INFORMATION
  Report Type: 
  Country: None (occurrence: None)
  Receive Date: 20070410
  Receipt Date: 20070403
  Transmission Date: 20071010
  Serious: Yes (Other)
  Sender: FDA-Public Use
  Company Number: A0646135A

PATIENT
  Sex: Female

DRUGS (1)
  1. ADVAIR DISKUS 100/50 [Suspect]
     Indication: DRUG USE FOR UNKNOWN INDICATION
     Dosage: 1 PUFF(S) / SINGLE DOSE / INHALED
     Route: 055

REACTIONS (4)
  - AGGRESSION [None]
  - ANGER [None]
  - ILL-DEFINED DISORDER [None]
  - PSYCHOTIC DISORDER [None]
